FAERS Safety Report 5232727-6 (Version None)
Quarter: 2007Q1

REPORT INFORMATION
  Report Type: 
  Country: None (occurrence: None)
  Receive Date: 20070206
  Receipt Date: 20070206
  Transmission Date: 20070707
  Serious: Yes (Hospitalization, Disabling)
  Sender: FDA-Public Use
  Company Number: None

PATIENT
  Age: 39 Year
  Sex: Female
  Weight: 58.9676 kg

DRUGS (1)
  1. CYMBALTA [Suspect]
     Indication: DEPRESSION
     Dosage: 60 MG DAILY  ONCE DAILY
     Dates: start: 20050901, end: 20051212

REACTIONS (8)
  - ABNORMAL BEHAVIOUR [None]
  - CEREBROVASCULAR ACCIDENT [None]
  - DELUSION [None]
  - DYSARTHRIA [None]
  - ECONOMIC PROBLEM [None]
  - INSOMNIA [None]
  - PSYCHOTIC DISORDER [None]
  - SPEECH DISORDER [None]
